FAERS Safety Report 19923428 (Version 1)
Quarter: 2021Q4

REPORT INFORMATION
  Report Type: Spontaneous
  Country: US (occurrence: US)
  Receive Date: 20211006
  Receipt Date: 20211006
  Transmission Date: 20220303
  Serious: No
  Sender: FDA-Public Use
  Company Number: US-PFIZER INC-202101132693

PATIENT
  Age: 29 Year
  Sex: Male
  Weight: 88.45 kg

DRUGS (2)
  1. ATROPINE SULFATE [Suspect]
     Active Substance: ATROPINE SULFATE
     Dosage: UNK
  2. PRALIDOXIME CHLORIDE [Suspect]
     Active Substance: PRALIDOXIME CHLORIDE
     Dosage: UNK

REACTIONS (1)
  - Injury associated with device [Unknown]

NARRATIVE: CASE EVENT DATE: 20210831
